FAERS Safety Report 5099133-9 (Version None)
Quarter: 2006Q3

REPORT INFORMATION
  Report Type: 
  Country: None (occurrence: None)
  Receive Date: 20060731
  Receipt Date: 20060227
  Transmission Date: 20061208
  Serious: No
  Sender: FDA-Public Use
  Company Number: 220318

PATIENT
  Age: 48 Year
  Sex: Female
  Weight: 122.4 kg

DRUGS (14)
  1. HERCEPTIN [Suspect]
     Indication: BREAST CANCER
     Dosage: SEE IMAGE
     Route: 042
     Dates: start: 20051025, end: 20051108
  2. HERCEPTIN [Suspect]
     Indication: BREAST CANCER
     Dosage: SEE IMAGE
     Route: 042
     Dates: start: 20051114, end: 20051206
  3. HERCEPTIN [Suspect]
     Indication: BREAST CANCER
     Dosage: SEE IMAGE
     Route: 042
     Dates: start: 20051018
  4. TAMOXIFEN CITRATE [Concomitant]
  5. SHAMPOO NOS (SHAMPOO NOS) [Concomitant]
  6. LEXAPRO (ESCITALOPRAM OXALATE) [Concomitant]
  7. PRILOSEC [Concomitant]
  8. GLUCOSAMINE (GLUCOSAMINE) [Concomitant]
  9. MULTIVITAMIN (MULTIVITAMINS NOS) [Concomitant]
  10. ADVIL [Concomitant]
  11. AMBIEN [Concomitant]
  12. WARFARIN SODIUM [Concomitant]
  13. COMPAZINE [Concomitant]
  14. MORPHINE SULFATE [Concomitant]

REACTIONS (2)
  - ERYTHEMA [None]
  - PAIN IN EXTREMITY [None]
